FAERS Safety Report 4530825-3 (Version None)
Quarter: 2004Q4

REPORT INFORMATION
  Report Type: 
  Country: None (occurrence: None)
  Receive Date: 20041216
  Receipt Date: 20041203
  Transmission Date: 20050328
  Serious: Yes (Hospitalization)
  Sender: FDA-Public Use
  Company Number: 04H-056-0282469-00

PATIENT
  Age: 54 Year
  Sex: Female
  Weight: 70 kg

DRUGS (7)
  1. PENTOTHAL [Suspect]
     Dosage: 175 MG, INTRAVENOUS
     Route: 042
     Dates: start: 20040927, end: 20040927
  2. DESFLURANE [Suspect]
     Dosage: INTRAVENOUS
     Route: 042
     Dates: start: 20040927, end: 20040927
  3. CLONAZEPAM [Suspect]
     Dosage: 0.75 MG, INTRAVENOUS
     Route: 042
     Dates: start: 20040929, end: 20040929
  4. SUCCINYLCHOLINE CHLORIDE [Suspect]
     Dosage: 60 MG, INTRAVENOUS
     Route: 042
     Dates: start: 20040927, end: 20040927
  5. CISATRACURIUM [Suspect]
     Dosage: 7 MG, INTRAVENOUS
     Route: 042
     Dates: start: 20040927, end: 20040927
  6. VALPROIC ACID [Concomitant]
  7. OXCARBAZEPINE [Concomitant]

REACTIONS (9)
  - ASPIRATION [None]
  - CHOLESTASIS [None]
  - COAGULATION FACTOR V LEVEL DECREASED [None]
  - CONVULSION [None]
  - CYTOLYTIC HEPATITIS [None]
  - HEPATIC ENCEPHALOPATHY [None]
  - HEPATITIS ACUTE [None]
  - PROTHROMBIN LEVEL DECREASED [None]
  - RESPIRATORY DISTRESS [None]
